FAERS Safety Report 9989838 (Version 1)
Quarter: 2013Q4

REPORT INFORMATION
  Report Type: Spontaneous
  Country: IT (occurrence: None)
  Receive Date: 20131113
  Receipt Date: 20131113
  Transmission Date: 20140711
  Serious: Yes (Hospitalization)
  Sender: FDA-Public Use
  Company Number: B0784838A

PATIENT
  Age: 6 Year
  Sex: Male

DRUGS (3)
  1. VENTOLIN UNSPECIFIED INHALER DEVICE (ALBUTEROL SULFATE) [Suspect]
     Indication: DYSPNOEA
     Route: 055
     Dates: start: 20110831, end: 20110905
  2. BOOSTRIX [Suspect]
     Indication: PROPHYLAXIS
  3. FLUTICASONE PROPIONATE [Concomitant]

REACTIONS (1)
  - Stevens-Johnson syndrome [None]
